FAERS Safety Report 9178936 (Version 1)
Quarter: 2012Q4

REPORT INFORMATION
  Report Type: 
  Country: JP (occurrence: JP)
  Receive Date: 20121029
  Receipt Date: 20121029
  Transmission Date: 20130627
  Serious: Yes (Hospitalization, Other)
  Sender: FDA-Public Use
  Company Number: JP-ABBOTT-12P-087-0976836-00

PATIENT
  Age: 75 Year
  Sex: Female

DRUGS (2)
  1. SEVOFLURANE [Suspect]
     Indication: INCISIONAL HERNIA
     Route: 065
  2. SEVOFLURANE [Suspect]
     Indication: COLON CANCER

REACTIONS (2)
  - Aspartate aminotransferase increased [Recovering/Resolving]
  - Alanine aminotransferase increased [Recovering/Resolving]
